FAERS Safety Report 5668823-9 (Version None)
Quarter: 2008Q1

REPORT INFORMATION
  Report Type: 
  Country: None (occurrence: None)
  Receive Date: 20080312
  Receipt Date: 20080312
  Transmission Date: 20080703
  Serious: Yes (Hospitalization)
  Sender: FDA-Public Use
  Company Number: None

PATIENT
  Sex: Female
  Weight: 72.72 kg

DRUGS (2)
  1. CARBOPLATIN [Suspect]
     Dosage: 420 MG
  2. TAXOL [Suspect]
     Dosage: 320 MG

REACTIONS (3)
  - HAEMOGLOBIN DECREASED [None]
  - PLATELET COUNT DECREASED [None]
  - UPPER RESPIRATORY TRACT INFECTION [None]
